FAERS Safety Report 21599448 (Version 1)
Quarter: 2022Q4

REPORT INFORMATION
  Report Type: Spontaneous
  Country: None (occurrence: CA)
  Receive Date: 20221115
  Receipt Date: 20221115
  Transmission Date: 20230113
  Serious: Yes (Hospitalization, Other)
  Sender: FDA-Public Use
  Company Number: CA-B.Braun Medical Inc.-2134898

PATIENT
  Age: 44 Year
  Sex: Male

DRUGS (18)
  1. CEFAZOLIN [Suspect]
     Active Substance: CEFAZOLIN
     Indication: Acute lymphocytic leukaemia
  2. POTASSIUM [Suspect]
     Active Substance: POTASSIUM
  3. ALLOPURINOL [Suspect]
     Active Substance: ALLOPURINOL
  4. CHOLECALCIFEROL [Suspect]
     Active Substance: CHOLECALCIFEROL
  5. CYCLOSPORINE [Suspect]
     Active Substance: CYCLOSPORINE
  6. CYCLOPHOSPHAMIDE [Suspect]
     Active Substance: CYCLOPHOSPHAMIDE
  7. CYCLOSPORINE [Suspect]
     Active Substance: CYCLOSPORINE
  8. CYTARABINE [Suspect]
     Active Substance: CYTARABINE
  9. DAUNORUBICIN [Suspect]
     Active Substance: DAUNORUBICIN
  10. DEXAMETHASONE [Suspect]
     Active Substance: DEXAMETHASONE
  11. ETOPOSIDE [Suspect]
     Active Substance: ETOPOSIDE
  12. FASTURTEC [Suspect]
     Active Substance: RASBURICASE
  13. FILGRASTIM [Suspect]
     Active Substance: FILGRASTIM
  14. FUROSEMIDE [Suspect]
     Active Substance: FUROSEMIDE
  15. METOCLOPRAMIDE HYDROCHLORIDE [Suspect]
     Active Substance: METOCLOPRAMIDE HYDROCHLORIDE
  16. MYCAMINE [Suspect]
     Active Substance: MICAFUNGIN SODIUM
  17. ONDANSETRON [Suspect]
     Active Substance: ONDANSETRON
  18. ZINECARD [Suspect]
     Active Substance: DEXRAZOXANE HYDROCHLORIDE

REACTIONS (9)
  - Bacterial infection [Unknown]
  - Cellulitis [Unknown]
  - Clostridium difficile colitis [Unknown]
  - Cytomegalovirus viraemia [Unknown]
  - Disseminated aspergillosis [Unknown]
  - Fungal infection [Unknown]
  - Lymphoid tissue hypoplasia [Unknown]
  - Product use in unapproved indication [Unknown]
  - Thymus hypoplasia [Unknown]
